FAERS Safety Report 4596501-6 (Version None)
Quarter: 2005Q1

REPORT INFORMATION
  Report Type: 
  Country: None (occurrence: None)
  Receive Date: 20050302
  Receipt Date: 20050218
  Transmission Date: 20050727
  Serious: Yes (Other)
  Sender: FDA-Public Use
  Company Number: FI-SANOFI-SYNTHELABO-F01200500295

PATIENT
  Sex: Female

DRUGS (5)
  1. DEXAMETHASONE [Concomitant]
     Indication: PROPHYLAXIS OF NAUSEA AND VOMITING
     Dosage: 10 MG
     Route: 042
     Dates: start: 20050119, end: 20050119
  2. TROPISETRON [Concomitant]
     Indication: PROPHYLAXIS OF NAUSEA AND VOMITING
     Dosage: 5 MG
     Route: 042
     Dates: start: 20050119, end: 20050119
  3. LEUCOVORIN [Suspect]
     Route: 042
     Dates: start: 20050119, end: 20050119
  4. FLUOROURACIL [Suspect]
     Dosage: NOT GIVEN AT THE TIME OF SAE (IV BOLUS FOLLOWED BY 48HOUR PUMP INFUSION)
     Route: 042
  5. ELOXATIN [Suspect]
     Indication: COLON CANCER
     Route: 042
     Dates: start: 20050119, end: 20050119

REACTIONS (4)
  - ERYTHEMA [None]
  - INFUSION RELATED REACTION [None]
  - LARYNGOSPASM [None]
  - URTICARIA [None]
